FAERS Safety Report 6040368-6 (Version None)
Quarter: 2009Q1

REPORT INFORMATION
  Report Type: 
  Country: None (occurrence: None)
  Receive Date: 20090116
  Receipt Date: 20080229
  Transmission Date: 20090719
  Serious: No
  Sender: FDA-Public Use
  Company Number: US-BRISTOL-MYERS SQUIBB COMPANY-14096028

PATIENT
  Age: 41 Year
  Sex: Female

DRUGS (5)
  1. ABILIFY [Suspect]
     Indication: BIPOLAR DISORDER
     Dosage: DOSING SCHEDULE-5MG IN THE MORNING AND 5 MG AT BEDTIME
  2. ABILIFY [Suspect]
     Indication: ANXIETY DISORDER
     Dosage: DOSING SCHEDULE-5MG IN THE MORNING AND 5 MG AT BEDTIME
  3. HYDROCODONE BITARTRATE [Concomitant]
  4. VALIUM [Concomitant]
  5. VICODIN [Concomitant]

REACTIONS (5)
  - HALLUCINATION, AUDITORY [None]
  - HALLUCINATION, VISUAL [None]
  - INSOMNIA [None]
  - SWOLLEN TONGUE [None]
  - THIRST [None]
